FAERS Safety Report 9063676 (Version 2)
Quarter: 2013Q1

REPORT INFORMATION
  Report Type: Other
  Country: IT (occurrence: IT)
  Receive Date: 20130125
  Receipt Date: 20130212
  Transmission Date: 20140127
  Serious: Yes (Hospitalization)
  Sender: FDA-Public Use
  Company Number: IT-NOVEN-13IT006013

PATIENT
  Age: 63 Year
  Sex: Male

DRUGS (1)
  1. PAROXETINE [Suspect]
     Indication: PRODUCT USED FOR UNKNOWN INDICATION
     Dosage: 10 MG, TOTAL
     Route: 048
     Dates: start: 20120221, end: 20120221

REACTIONS (3)
  - Cachexia [Unknown]
  - Drug abuse [Unknown]
  - Rash [Unknown]
